FAERS Safety Report 4396704-X (Version None)
Quarter: 2004Q3

REPORT INFORMATION
  Report Type: 
  Country: None (occurrence: None)
  Receive Date: 20040708
  Receipt Date: 20040624
  Transmission Date: 20050211
  Serious: Yes (Other)
  Sender: FDA-Public Use
  Company Number: 2004220975GB

PATIENT
  Age: 42 Year
  Sex: Male
  Weight: 76 kg

DRUGS (5)
  1. BEXTRA [Suspect]
     Dosage: 20 MG, QD, ORAL
     Route: 048
     Dates: start: 20040518
  2. FLUOXETINE [Suspect]
     Indication: DEPRESSION
     Dosage: 20 MG, QD, ORAL
     Route: 048
     Dates: start: 20040305, end: 20040607
  3. TRAMADOL [Concomitant]
  4. PREDNISOLONE [Concomitant]
  5. WARFARIN SODIUM [Concomitant]

REACTIONS (2)
  - PHOTOSENSITIVITY REACTION [None]
  - SYSTEMIC LUPUS ERYTHEMATOSUS [None]
